FAERS Safety Report 6762847-6 (Version None)
Quarter: 2010Q2

REPORT INFORMATION
  Report Type: 
  Country: None (occurrence: None)
  Receive Date: 20100609
  Receipt Date: 20100529
  Transmission Date: 20101027
  Serious: Yes (Hospitalization)
  Sender: FDA-Public Use
  Company Number: US-PFIZER INC-2010067564

PATIENT
  Age: 47 Year
  Sex: Male
  Weight: 97.9 kg

DRUGS (4)
  1. BLINDED *NO SUBJECT DRUG [Suspect]
     Indication: RENAL CELL CARCINOMA
     Dosage: UNK
     Route: 048
     Dates: start: 20090417, end: 20100513
  2. BLINDED *PLACEBO [Suspect]
     Indication: RENAL CELL CARCINOMA
     Dosage: UNK
     Route: 048
     Dates: start: 20090417, end: 20100513
  3. BLINDED *SORAFENIB [Suspect]
     Indication: RENAL CELL CARCINOMA
     Dosage: UNK
     Route: 048
     Dates: start: 20090417, end: 20100513
  4. SUNITINIB MALATE [Suspect]
     Indication: RENAL CELL CARCINOMA
     Dosage: UNK
     Route: 048
     Dates: start: 20090417, end: 20100513

REACTIONS (1)
  - CELLULITIS [None]
